FAERS Safety Report 18593414 (Version 3)
Quarter: 2021Q2

REPORT INFORMATION
  Report Type: Report from Study
  Country: KR (occurrence: KR)
  Receive Date: 20201209
  Receipt Date: 20210514
  Transmission Date: 20210717
  Serious: Yes (Death, Life-Threatening)
  Sender: FDA-Public Use
  Company Number: KR-GLAXOSMITHKLINE-KR2020237860

PATIENT
  Age: 42 Year
  Sex: Male

DRUGS (38)
  1. LIDOCAINE. [Concomitant]
     Active Substance: LIDOCAINE
     Indication: CEREBRAL HAEMORRHAGE
     Dosage: 20 ML, SINGLE
     Route: 042
     Dates: start: 20201130, end: 20201130
  2. HUMULIN R [Concomitant]
     Active Substance: INSULIN HUMAN
     Indication: METABOLIC DISORDER PROPHYLAXIS
     Dosage: 8 IU, 1D
     Route: 042
     Dates: start: 20201130, end: 20201130
  3. ATROPINE SULFATE. [Concomitant]
     Active Substance: ATROPINE SULFATE
     Indication: CRANIOTOMY
     Dosage: 0.5 MG, SINGLE
     Route: 042
     Dates: start: 20201130, end: 20201130
  4. CEFAZOLIN [Concomitant]
     Active Substance: CEFAZOLIN
     Indication: INFECTION PROPHYLAXIS
     Dosage: 0.5 G, 1D
     Route: 042
     Dates: start: 20201130, end: 20201130
  5. LEVETIRACETAM. [Concomitant]
     Active Substance: LEVETIRACETAM
     Indication: SEIZURE PROPHYLAXIS
     Dosage: 250 MG, BID
     Route: 042
     Dates: start: 20201130, end: 20201203
  6. VOLULYTE [Concomitant]
     Indication: CEREBRAL HAEMORRHAGE
     Dosage: 500 MG, QD
     Route: 042
     Dates: start: 20201130, end: 20201201
  7. BELANTAMAB MAFODOTIN. [Suspect]
     Active Substance: BELANTAMAB MAFODOTIN
     Indication: PLASMA CELL MYELOMA
     Dosage: 179.25 ML, CYC
     Route: 042
     Dates: start: 20200827, end: 20201204
  8. VASELINE PURE [Concomitant]
     Active Substance: PETROLATUM
     Indication: PROPHYLAXIS
     Dosage: 10 GRAIN, PRN
     Route: 061
     Dates: start: 20201201, end: 20201203
  9. PETHIDINE [Concomitant]
     Active Substance: MEPERIDINE
     Indication: PAIN PROPHYLAXIS
     Dosage: 25 MG, QD
     Route: 042
     Dates: start: 20201201, end: 20201201
  10. RAMOSETRON HYDROCHLORIDE [Concomitant]
     Active Substance: RAMOSETRON HYDROCHLORIDE
     Indication: PROPHYLAXIS OF NAUSEA AND VOMITING
     Dosage: 0.3 MG, 1D
     Route: 042
     Dates: start: 20201130, end: 20201130
  11. HUMULIN R [Concomitant]
     Active Substance: INSULIN HUMAN
     Dosage: 8 IU, 1D
     Route: 042
     Dates: start: 20201201, end: 20201201
  12. SUCCINYLCHOLINE [Concomitant]
     Active Substance: SUCCINYLCHOLINE
     Indication: PREMEDICATION
     Dosage: 50 MG, SINGLE
     Route: 042
     Dates: start: 20201130, end: 20201130
  13. ACETAMINOPHEN. [Concomitant]
     Active Substance: ACETAMINOPHEN
     Indication: PYREXIA
     Dosage: 1 G, 1D
     Route: 042
     Dates: start: 20201203, end: 20201203
  14. ROCURONIUM BROMIDE. [Concomitant]
     Active Substance: ROCURONIUM BROMIDE
     Indication: THERAPEUTIC PROCEDURE
     Dosage: 100 MG, SINGLE
     Route: 042
     Dates: start: 20201130, end: 20201130
  15. PHENYLEPHRINE [Concomitant]
     Active Substance: PHENYLEPHRINE HYDROCHLORIDE
     Indication: CEREBRAL HAEMORRHAGE
     Dosage: 1 MG, SINGLE
     Route: 042
     Dates: start: 20201130, end: 20201130
  16. FAMOTIDINE. [Concomitant]
     Active Substance: FAMOTIDINE
     Dosage: 10 MG, 1D
     Route: 042
     Dates: start: 20201201, end: 20201203
  17. ESMOLOL [Concomitant]
     Active Substance: ESMOLOL HYDROCHLORIDE
     Indication: CRANIOTOMY
     Dosage: 20 MG, SINGLE
     Route: 042
     Dates: start: 20201130, end: 20201130
  18. ATRACURIUM [Concomitant]
     Active Substance: ATRACURIUM
     Indication: PREMEDICATION
     Dosage: 50 MG, SINGLE
     Route: 042
     Dates: start: 20201130, end: 20201130
  19. TRANEXAMIC ACID. [Concomitant]
     Active Substance: TRANEXAMIC ACID
     Indication: CEREBRAL HAEMORRHAGE
     Dosage: 500 MG, 1D
     Route: 042
     Dates: start: 20201130, end: 20201201
  20. FUSIDATE [Concomitant]
     Active Substance: FUSIDATE SODIUM
     Indication: CEREBRAL HAEMORRHAGE
     Dosage: 10 G, PRN
     Route: 061
     Dates: start: 20201130, end: 20201204
  21. CHLORHEXIDIN [Concomitant]
     Active Substance: CHLORHEXIDINE
     Indication: PROPHYLAXIS
     Dosage: 200 ML, PRN
     Route: 061
     Dates: start: 20201130, end: 20201203
  22. EPINEPHRINE. [Concomitant]
     Active Substance: EPINEPHRINE
     Indication: CEREBRAL HAEMORRHAGE
     Dosage: 1 MG, 1D
     Dates: start: 20201130, end: 20201130
  23. EPHEDRINE. [Concomitant]
     Active Substance: EPHEDRINE
     Indication: CEREBRAL HAEMORRHAGE
     Dosage: 40 MG, QD
     Route: 042
     Dates: start: 20201130, end: 20201130
  24. DEXAMETHASONE NON GSK [Suspect]
     Active Substance: DEXAMETHASONE
     Indication: PLASMA CELL MYELOMA
     Dosage: 20 MG
     Dates: start: 20200827, end: 20201204
  25. ACETYLCYSTEINE. [Concomitant]
     Active Substance: ACETYLCYSTEINE
     Indication: PROPHYLAXIS
     Dosage: 300 MG, 1D
     Route: 042
     Dates: start: 20201130, end: 20201130
  26. FENTANYL. [Concomitant]
     Active Substance: FENTANYL
     Indication: PREMEDICATION
     Dosage: 100 DF, SINGLE
     Route: 042
     Dates: start: 20201130, end: 20201130
  27. ETOMIDATE. [Concomitant]
     Active Substance: ETOMIDATE
     Indication: PREMEDICATION
     Dosage: 20 MG, SINGLE
     Route: 042
     Dates: start: 20201130, end: 20201130
  28. FAMOTIDINE. [Concomitant]
     Active Substance: FAMOTIDINE
     Indication: PROPHYLAXIS
     Dosage: 10 MG, 1D
     Route: 042
     Dates: start: 20201130, end: 20201130
  29. ACETYLCYSTEINE. [Concomitant]
     Active Substance: ACETYLCYSTEINE
     Dosage: 300 MG, 1D
     Route: 042
     Dates: start: 20201201, end: 20201203
  30. NICARDIPINE HYDROCHLORIDE. [Concomitant]
     Active Substance: NICARDIPINE HYDROCHLORIDE
     Indication: VASCULAR DISORDER PROPHYLAXIS
     Dosage: 1 MG, QD
     Route: 042
     Dates: start: 20201202, end: 20201202
  31. REMIFENTANIL [Concomitant]
     Active Substance: REMIFENTANIL
     Indication: PREMEDICATION
     Dosage: 4 MG, SINGLE
     Route: 058
     Dates: start: 20201130, end: 20201130
  32. LEVETIRACETAM. [Concomitant]
     Active Substance: LEVETIRACETAM
     Indication: SEIZURE
     Dosage: 500 MG, BID
     Route: 042
     Dates: start: 20201130, end: 20201130
  33. POTASSIUM CHLORIDE + SODIUM CHLORIDE [Concomitant]
     Active Substance: POTASSIUM CHLORIDE\SODIUM CHLORIDE
     Indication: METABOLIC DISORDER PROPHYLAXIS
     Dosage: 100 ML, 1D
     Route: 042
     Dates: start: 20201202, end: 20201202
  34. GLYCERIN. [Concomitant]
     Active Substance: GLYCERIN
     Indication: CEREBRAL HAEMORRHAGE
     Dosage: 250 ML
     Route: 042
     Dates: start: 20201201, end: 20201203
  35. BORTEZOMIB. [Suspect]
     Active Substance: BORTEZOMIB
     Indication: PLASMA CELL MYELOMA
     Dosage: 2.39 MG, CYC
     Route: 058
     Dates: start: 20200827, end: 20201204
  36. NOREPINEPHRINE. [Concomitant]
     Active Substance: NOREPINEPHRINE
     Indication: CEREBRAL HAEMORRHAGE
     Dosage: 1 MG, 1D
     Route: 042
     Dates: start: 20201130, end: 20201130
  37. TRANEXAMIC ACID. [Concomitant]
     Active Substance: TRANEXAMIC ACID
     Dosage: 500 MG, 1D
     Route: 042
     Dates: start: 20201201, end: 20201203
  38. ACETAMINOPHEN. [Concomitant]
     Active Substance: ACETAMINOPHEN
     Dosage: 1 G, 1D
     Route: 042
     Dates: start: 20201201, end: 20201201

REACTIONS (1)
  - Subdural haemorrhage [Fatal]

NARRATIVE: CASE EVENT DATE: 20201130
